FAERS Safety Report 19014675 (Version 1)
Quarter: 2021Q1

REPORT INFORMATION
  Report Type: Spontaneous
  Country: US (occurrence: US)
  Receive Date: 20210316
  Receipt Date: 20210316
  Transmission Date: 20210420
  Serious: No
  Sender: FDA-Public Use
  Company Number: US-PIERREL PHARMA S.P.A.-2020PIR00001

PATIENT
  Sex: Female
  Weight: 58.96 kg

DRUGS (1)
  1. ORABLOC [Suspect]
     Active Substance: ARTICAINE HYDROCHLORIDE\EPINEPHRINE BITARTRATE
     Indication: TOOTH EXTRACTION
     Dosage: 4 DOSAGE UNITS, ONCE

REACTIONS (1)
  - Drug ineffective [Recovered/Resolved]
